FAERS Safety Report 4775129-9 (Version None)
Quarter: 2005Q3

REPORT INFORMATION
  Report Type: 
  Country: None (occurrence: None)
  Receive Date: 20050920
  Receipt Date: 20050908
  Transmission Date: 20060218
  Serious: Yes (Other)
  Sender: FDA-Public Use
  Company Number: 2005126136

PATIENT
  Age: 64 Year
  Sex: Female
  Weight: 90.7194 kg

DRUGS (11)
  1. TIKOSYN [Suspect]
     Indication: ATRIAL FIBRILLATION
     Dosage: 500 MCG (250 MCG, BID INTERVAL: EVERY DAY)
     Dates: start: 20050301
  2. COUMADINE (WARFIRIN SODIUM) [Suspect]
     Indication: CORONARY ARTERY DISEASE
     Dosage: (5 MG, BID INTERVAL: EVERY DAY)
     Dates: start: 20041001
  3. FUROSEMIDE [Concomitant]
  4. GLYBURIDE [Concomitant]
  5. ATENOLOL [Concomitant]
  6. LISINOPRIL [Concomitant]
  7. LIPITOR [Concomitant]
  8. POTASSIUM (POTASSIUM) [Concomitant]
  9. ASPIRIN [Concomitant]
  10. SENNA (SENNA) [Concomitant]
  11. DRAMAMINE [Concomitant]

REACTIONS (3)
  - ATRIAL FIBRILLATION [None]
  - EPISTAXIS [None]
  - VOMITING [None]
